FAERS Safety Report 9288426 (Version 1)
Quarter: 2013Q2

REPORT INFORMATION
  Report Type: Spontaneous
  Country: US (occurrence: US)
  Receive Date: 20130514
  Receipt Date: 20130514
  Transmission Date: 20140414
  Serious: No
  Sender: FDA-Public Use
  Company Number: US-ASTRAZENECA-2013SE26930

PATIENT
  Age: 67 Year
  Sex: Female

DRUGS (1)
  1. ATACAND HCT [Suspect]
     Indication: HYPERTENSION
     Dosage: 16/12.5, UNKNOWN
     Route: 048
     Dates: start: 2007

REACTIONS (2)
  - Feeling abnormal [Unknown]
  - Pancreatic disorder [Unknown]
